FAERS Safety Report 4349807-X (Version None)
Quarter: 2004Q2

REPORT INFORMATION
  Report Type: 
  Country: None (occurrence: None)
  Receive Date: 20040426
  Receipt Date: 20040413
  Transmission Date: 20050107
  Serious: Yes (Death, Other)
  Sender: FDA-Public Use
  Company Number: 2004025157

PATIENT
  Age: 78 Year
  Sex: Male

DRUGS (3)
  1. PHENYTOIN [Suspect]
     Indication: PROPHYLAXIS
     Dosage: 200 MG BID
  2. DEXAMETHASONE [Suspect]
     Indication: PROPHYLAXIS
  3. THERAPEUTIC RADIOPHARMACEUTICALS  (THERAPEUTIC RADIOPHARMACEUTICALS) [Suspect]
     Indication: ILL-DEFINED DISORDER

REACTIONS (2)
  - ERYTHEMA MULTIFORME [None]
  - RASH GENERALISED [None]
